FAERS Safety Report 5211949-4 (Version None)
Quarter: 2007Q1

REPORT INFORMATION
  Report Type: 
  Country: None (occurrence: None)
  Receive Date: 20070118
  Receipt Date: 20070112
  Transmission Date: 20070707
  Serious: Yes (Death)
  Sender: FDA-Public Use
  Company Number: MY-AVENTIS-200710230EU

PATIENT
  Age: 64 Year
  Sex: Male

DRUGS (1)
  1. CLEXANE [Suspect]
     Route: 058
     Dates: start: 20060810

REACTIONS (2)
  - DRUG INEFFECTIVE [None]
  - PULMONARY EMBOLISM [None]
